FAERS Safety Report 19738630 (Version 1)
Quarter: 2021Q3

REPORT INFORMATION
  Report Type: Spontaneous
  Country: FR (occurrence: FR)
  Receive Date: 20210824
  Receipt Date: 20210824
  Transmission Date: 20211014
  Serious: Yes (Other)
  Sender: FDA-Public Use
  Company Number: FR-ROCHE-2893543

PATIENT
  Age: 22 Year
  Sex: Male

DRUGS (2)
  1. OXYCODONE [Suspect]
     Active Substance: OXYCODONE
     Indication: POISONING DELIBERATE
     Route: 048
     Dates: start: 20210725, end: 20210725
  2. VALIUM [Suspect]
     Active Substance: DIAZEPAM
     Indication: POISONING DELIBERATE
     Route: 048
     Dates: start: 20210725, end: 20210725

REACTIONS (3)
  - Somnolence [Recovered/Resolved]
  - Miosis [Recovered/Resolved]
  - Toxicity to various agents [Recovered/Resolved with Sequelae]

NARRATIVE: CASE EVENT DATE: 20210725
